FAERS Safety Report 17437014 (Version 1)
Quarter: 2020Q1

REPORT INFORMATION
  Report Type: Spontaneous
  Country: US (occurrence: US)
  Receive Date: 20200219
  Receipt Date: 20200219
  Transmission Date: 20200409
  Serious: Yes (Other)
  Sender: FDA-Public Use
  Company Number: US-JNJFOC-20200212016

PATIENT
  Sex: Male

DRUGS (1)
  1. ZYTIGA [Suspect]
     Active Substance: ABIRATERONE ACETATE
     Indication: PROSTATE CANCER
     Route: 048

REACTIONS (3)
  - Dysphagia [Not Recovered/Not Resolved]
  - Vocal cord paralysis [Not Recovered/Not Resolved]
  - Gastrostomy [Not Recovered/Not Resolved]

NARRATIVE: CASE EVENT DATE: 20200205
